FAERS Safety Report 10435354 (Version 1)
Quarter: 2014Q3

REPORT INFORMATION
  Report Type: Report from Study
  Country: US (occurrence: US)
  Receive Date: 20140908
  Receipt Date: 20140908
  Transmission Date: 20150326
  Serious: Yes (Other)
  Sender: FDA-Public Use
  Company Number: US-ROCHE-1455714

PATIENT

DRUGS (1)
  1. CEFTRIAXONE. [Suspect]
     Active Substance: CEFTRIAXONE
     Indication: PRODUCT USED FOR UNKNOWN INDICATION
     Route: 065

REACTIONS (9)
  - Swelling [Unknown]
  - Cardiac arrest [Unknown]
  - Rash [Unknown]
  - Anaphylactic reaction [Unknown]
  - Respiratory depression [Unknown]
  - Sickle cell anaemia [Unknown]
  - Pruritus [Unknown]
  - Periorbital oedema [Unknown]
  - Urticaria [Unknown]
